FAERS Safety Report 24970445 (Version 1)
Quarter: 2025Q1

REPORT INFORMATION
  Report Type: Spontaneous
  Country: DE (occurrence: DE)
  Receive Date: 20250214
  Receipt Date: 20250214
  Transmission Date: 20250408
  Serious: Yes (Hospitalization, Other)
  Sender: TORRENT PHARMA INC.
  Company Number: None

PATIENT
  Age: 75 Year
  Sex: Female
  Weight: 71 kg

DRUGS (23)
  1. VALSARTAN [Suspect]
     Active Substance: VALSARTAN
     Indication: Hypertension
     Dosage: 1 DOSAGE FORM, QD (0.5 DOSAGE FORM, BID (160 MG) IN THE MORNING AND EVENING)
     Route: 065
     Dates: start: 20141029, end: 2018
  2. ALENDRONIC ACID [Concomitant]
     Active Substance: ALENDRONIC ACID
     Indication: Product used for unknown indication
     Dosage: UNK, QW (1X 70 MG QW (SUNDAY))
     Route: 065
  3. AMLODIPINE BESYLATE [Concomitant]
     Active Substance: AMLODIPINE BESYLATE
     Indication: Product used for unknown indication
     Dosage: 5 MG, QD (IN THE EVENING, 100 TABLETS)
     Route: 065
  4. AMLODIPINE [Concomitant]
     Active Substance: AMLODIPINE BESYLATE
     Indication: Product used for unknown indication
     Route: 065
  5. ATORVASTATIN [Concomitant]
     Active Substance: ATORVASTATIN
     Indication: Product used for unknown indication
     Dosage: 20 MG, QD (IN THE EVENING, 100 TABLETS)
     Route: 065
  6. BECLOMETHASONE [Concomitant]
     Active Substance: BECLOMETHASONE
     Indication: Product used for unknown indication
     Dosage: 1 DOSAGE FORM, BID (ONCE IN THE MORNING, ONCE IN THE EVENING (1-0-1))
     Route: 065
  7. CHOLECALCIFEROL [Concomitant]
     Active Substance: CHOLECALCIFEROL
     Indication: Product used for unknown indication
     Dosage: 1000 IU, QD (IN THE MORNING (1-0-0))
     Route: 065
  8. EZETIMIBE [Concomitant]
     Active Substance: EZETIMIBE
     Indication: Product used for unknown indication
     Dosage: 10 MG, QD (1X 10 MG ONCE IN THE EVENING (0-0-1))
     Route: 065
  9. HERZASS [Concomitant]
     Indication: Product used for unknown indication
     Dosage: 1 DOSAGE FORM, QD (100 MG) IN MORNING (100 TABLETS)
     Route: 065
  10. LISINOPRIL [Concomitant]
     Active Substance: LISINOPRIL
     Indication: Product used for unknown indication
     Route: 065
  11. METAMIZOLE [Concomitant]
     Active Substance: METAMIZOLE
     Indication: Product used for unknown indication
     Route: 065
  12. METOPROLOL SUCCINATE [Concomitant]
     Active Substance: METOPROLOL SUCCINATE
     Indication: Product used for unknown indication
     Dosage: 0.5 MG, (95 MG) BID IN MORNING AND EVENING (100 TABLETS)
     Route: 065
     Dates: start: 201812
  13. METOPROLOL [Concomitant]
     Active Substance: METOPROLOL
     Indication: Product used for unknown indication
     Dosage: 0.5 DOSAGE FORM, BID (0.5-0-0.5 INCREASED)
     Route: 065
  14. METAMIZOLE SODIUM [Concomitant]
     Active Substance: METAMIZOLE SODIUM
     Indication: Orthopaedic procedure
     Route: 065
  15. PANTOPRAZOL CT [Concomitant]
     Indication: Product used for unknown indication
     Dosage: 1 DOSAGE FORM, QD (20 MG) IN THE MORNING (TOTAL 100 ENTERIC COATED TABLETS)
     Route: 065
  16. PANTOPRAZOLE [Concomitant]
     Active Substance: PANTOPRAZOLE
     Indication: Product used for unknown indication
     Dosage: 1X 20 MG IN THE MORNING (1-0-0, QD
     Route: 065
  17. PANTOZOL [Concomitant]
     Active Substance: PANTOPRAZOLE SODIUM
     Indication: Product used for unknown indication
     Dosage: 1 DOSAGE FORM, QD (20 MG) IN THE MORNING
     Route: 065
  18. ALBUTEROL [Concomitant]
     Active Substance: ALBUTEROL
     Indication: Product used for unknown indication
     Route: 065
  19. SIMVASTATIN [Concomitant]
     Active Substance: SIMVASTATIN
     Indication: Product used for unknown indication
     Dosage: 1 DOSAGE FORM, QD (30 MG) AT NIGHT
     Route: 065
     Dates: end: 201702
  20. SIMVASTATIN [Concomitant]
     Active Substance: SIMVASTATIN
     Indication: Product used for unknown indication
     Route: 065
  21. TORSEMIDE [Concomitant]
     Active Substance: TORSEMIDE
     Indication: Product used for unknown indication
     Route: 065
  22. BECLOMETHASONE DIPROPIONATE [Concomitant]
     Active Substance: BECLOMETHASONE DIPROPIONATE
     Indication: Lung disorder
     Dosage: 100 UG, BID (IN THE MORN AND EVEN, 200 PUFF, 2 UNITS)
     Route: 065
  23. VITAMIN D3 [Concomitant]
     Active Substance: CHOLECALCIFEROL
     Indication: Product used for unknown indication
     Dosage: 1 DOSAGE FORM, QD (IN MORNING (100 TABLETS)
     Route: 065

REACTIONS (44)
  - Arrhythmia [Unknown]
  - Vomiting [Recovered/Resolved]
  - Malaise [Recovered/Resolved]
  - Circulatory collapse [Recovered/Resolved]
  - Restlessness [Recovered/Resolved]
  - Renal cell carcinoma [Recovered/Resolved]
  - Atrial fibrillation [Unknown]
  - Renal cyst [Unknown]
  - Haemangioma [Unknown]
  - Deafness neurosensory [Unknown]
  - Osteochondrosis [Unknown]
  - Renal atrophy [Unknown]
  - Hypokalaemia [Unknown]
  - Pancreatic neoplasm [Unknown]
  - Chronic kidney disease [Unknown]
  - Osteoarthritis [Unknown]
  - Hyperlipidaemia [Unknown]
  - Coronary artery disease [Unknown]
  - Chronic gastritis [Unknown]
  - Haemangioma of bone [Unknown]
  - Intervertebral disc protrusion [Unknown]
  - Uterine leiomyoma [Unknown]
  - Hepatic cyst [Unknown]
  - Hyperuricaemia [Unknown]
  - Hiatus hernia [Unknown]
  - Diverticulum intestinal [Unknown]
  - Atrioventricular block first degree [Unknown]
  - Obesity [Unknown]
  - Body mass index abnormal [Unknown]
  - Asthma [Unknown]
  - Varicose vein [Unknown]
  - Hypercholesterolaemia [Unknown]
  - Pleural effusion [Unknown]
  - Mediastinal disorder [Unknown]
  - Glucose tolerance impaired [Unknown]
  - Blood glucose abnormal [Unknown]
  - Pancreatic cyst [Unknown]
  - Anaemia [Unknown]
  - Emotional distress [Unknown]
  - Anxiety disorder [Unknown]
  - Restlessness [Unknown]
  - Urinary tract infection bacterial [Unknown]
  - Dizziness [Unknown]
  - Product contamination [Unknown]

NARRATIVE: CASE EVENT DATE: 20181201
